FAERS Safety Report 13747058 (Version 1)
Quarter: 2017Q3

REPORT INFORMATION
  Report Type: Spontaneous
  Country: US (occurrence: US)
  Receive Date: 20170712
  Receipt Date: 20170712
  Transmission Date: 20171127
  Serious: No
  Sender: FDA-Public Use
  Company Number: US-MANNKIND CORPORATION-2017MK000088

PATIENT
  Age: 60 Year
  Sex: Female

DRUGS (7)
  1. AFREZZA [Suspect]
     Active Substance: INSULIN HUMAN
     Indication: TYPE 1 DIABETES MELLITUS
     Dates: start: 201706
  2. AFREZZA [Suspect]
     Active Substance: INSULIN HUMAN
     Dates: start: 20170508, end: 201706
  3. AFREZZA [Suspect]
     Active Substance: INSULIN HUMAN
     Dates: start: 201706, end: 20170611
  4. AFREZZA [Suspect]
     Active Substance: INSULIN HUMAN
     Dates: start: 20170508, end: 201706
  5. LANTUS [Concomitant]
     Active Substance: INSULIN GLARGINE
     Indication: TYPE 1 DIABETES MELLITUS
     Dates: end: 20170608
  6. AFREZZA [Suspect]
     Active Substance: INSULIN HUMAN
     Dates: start: 20170508, end: 201706
  7. TRESIBA [Concomitant]
     Active Substance: INSULIN DEGLUDEC
     Indication: TYPE 1 DIABETES MELLITUS

REACTIONS (7)
  - Throat irritation [Recovered/Resolved]
  - Tremor [Recovered/Resolved]
  - Dyspnoea [Unknown]
  - Vomiting [Recovered/Resolved]
  - Hallucination [Recovered/Resolved]
  - Disorientation [Recovered/Resolved]
  - Dyspepsia [Not Recovered/Not Resolved]

NARRATIVE: CASE EVENT DATE: 2017
